FAERS Safety Report 4682130-2 (Version None)
Quarter: 2005Q2

REPORT INFORMATION
  Report Type: 
  Country: None (occurrence: None)
  Receive Date: 20050602
  Receipt Date: 20040804
  Transmission Date: 20051028
  Serious: No
  Sender: FDA-Public Use
  Company Number: 0408-239

PATIENT
  Sex: Female

DRUGS (6)
  1. DUONEB [Suspect]
     Dosage: DUONEB - 1 UNIT
  2. QVAR INHALER [Concomitant]
  3. SINGULAIR [Concomitant]
  4. NORVASC [Concomitant]
  5. DIOVAN [Concomitant]
  6. HYDROCHLOROTHIAZIDE [Concomitant]

REACTIONS (1)
  - CHEST DISCOMFORT [None]
